FAERS Safety Report 11324553 (Version 1)
Quarter: 2015Q3

REPORT INFORMATION
  Report Type: Spontaneous
  Country: IL (occurrence: IL)
  Receive Date: 20150730
  Receipt Date: 20150730
  Transmission Date: 20151125
  Serious: Yes (Other)
  Sender: FDA-Public Use
  Company Number: IL-PFIZER INC-2015212420

PATIENT
  Age: 6 Year
  Sex: Female

DRUGS (1)
  1. GENOTROPIN [Suspect]
     Active Substance: SOMATROPIN
     Dosage: 0.6 (UNKNOWN UNIT), 1X/DAY
     Route: 058
     Dates: start: 201506

REACTIONS (5)
  - Vomiting [Unknown]
  - Injection site pain [Recovered/Resolved]
  - Nervousness [Unknown]
  - Injection site haemorrhage [Recovered/Resolved]
  - Pertussis [Recovering/Resolving]

NARRATIVE: CASE EVENT DATE: 201506
